FAERS Safety Report 12225477 (Version 1)
Quarter: 2016Q1

REPORT INFORMATION
  Report Type: Spontaneous
  Country: US (occurrence: None)
  Receive Date: 20160330
  Receipt Date: 20160330
  Transmission Date: 20160526
  Serious: No
  Sender: FDA-Public Use
  Company Number: None

PATIENT
  Sex: Male

DRUGS (2)
  1. SENSIPAR [Suspect]
     Active Substance: CINACALCET HYDROCHLORIDE
     Indication: RENAL DISORDER
     Dosage: 06/17/2016 TO CURRENT
     Route: 048
     Dates: start: 20160106
  2. SENSIPAR [Suspect]
     Active Substance: CINACALCET HYDROCHLORIDE
     Indication: HYPERPARATHYROIDISM SECONDARY
     Dosage: 06/17/2016 TO CURRENT
     Route: 048
     Dates: start: 20160106

REACTIONS (4)
  - Muscular weakness [None]
  - Vascular graft [None]
  - Dialysis [None]
  - Condition aggravated [None]
